FAERS Safety Report 23921242 (Version 1)
Quarter: 2024Q2

REPORT INFORMATION
  Report Type: Spontaneous
  Country: FR (occurrence: FR)
  Receive Date: 20240530
  Receipt Date: 20240530
  Transmission Date: 20240716
  Serious: Yes (Hospitalization)
  Sender: FDA-Public Use
  Company Number: FR-AFSSAPS-LY2023001073

PATIENT
  Age: 64 Year
  Sex: Male

DRUGS (1)
  1. PEGASYS [Suspect]
     Active Substance: PEGINTERFERON ALFA-2A
     Indication: Erdheim-Chester disease
     Dosage: 90 ?G, 1X/WEEK
     Route: 003
     Dates: start: 202206, end: 20230208

REACTIONS (2)
  - Guillain-Barre syndrome [Recovered/Resolved]
  - Off label use [Recovered/Resolved]

NARRATIVE: CASE EVENT DATE: 20221201
